FAERS Safety Report 4350508-2 (Version None)
Quarter: 2004Q2

REPORT INFORMATION
  Report Type: 
  Country: None (occurrence: None)
  Receive Date: 20040429
  Receipt Date: 20040419
  Transmission Date: 20050107
  Serious: Yes (Hospitalization, Other)
  Sender: FDA-Public Use
  Company Number: A-US2004-05886

PATIENT
  Age: 74 Year
  Sex: Male
  Weight: 117.9 kg

DRUGS (3)
  1. TRACLEER [Suspect]
     Indication: PULMONARY HYPERTENSION
     Dosage: SEE IMAGE
     Route: 048
     Dates: start: 20031015, end: 20031125
  2. TRACLEER [Suspect]
     Indication: PULMONARY HYPERTENSION
     Dosage: SEE IMAGE
     Route: 048
     Dates: start: 20031126, end: 20031201
  3. ARANESP [Concomitant]

REACTIONS (4)
  - ANAEMIA [None]
  - GENERALISED OEDEMA [None]
  - HYPOTENSION [None]
  - RENAL FAILURE [None]
